FAERS Safety Report 5870738-8 (Version None)
Quarter: 2008Q3

REPORT INFORMATION
  Report Type: 
  Country: None (occurrence: None)
  Receive Date: 20080904
  Receipt Date: 20080821
  Transmission Date: 20090109
  Serious: No
  Sender: FDA-Public Use
  Company Number: US-ASTRAZENECA-2008UW17217

PATIENT
  Age: 55 Year
  Sex: Female

DRUGS (7)
  1. SEROQUEL [Suspect]
     Indication: BIPOLAR DISORDER
     Route: 048
     Dates: start: 20051101
  2. ACCOLATE [Suspect]
     Route: 048
  3. GABAPENTIN [Concomitant]
  4. CYMBALTA [Concomitant]
  5. AVANDIA [Concomitant]
  6. MIRTAZAPINE [Concomitant]
  7. LORAZEPAM [Concomitant]

REACTIONS (2)
  - NEUTROPHIL COUNT DECREASED [None]
  - WHITE BLOOD CELL COUNT DECREASED [None]
